FAERS Safety Report 23371665 (Version 1)
Quarter: 2024Q1

REPORT INFORMATION
  Report Type: Spontaneous
  Country: CA (occurrence: CA)
  Receive Date: 20240105
  Receipt Date: 20240105
  Transmission Date: 20240409
  Serious: Yes (Hospitalization)
  Sender: FDA-Public Use
  Company Number: CA-FreseniusKabi-FK202400129

PATIENT
  Age: 71 Year
  Sex: Male

DRUGS (7)
  1. OXALIPLATIN [Suspect]
     Active Substance: OXALIPLATIN
     Indication: Colorectal cancer
     Dosage: ROUTE OF ADMIN: SUBCUTANEOUS
  2. LEUCOVORIN [Suspect]
     Active Substance: LEUCOVORIN\LEUCOVORIN CALCIUM
     Indication: Colorectal cancer
     Dosage: ROUTE OF ADMIN: SUBCUTANEOUS?NOT SPECIFIED
  3. FLUOROURACIL [Suspect]
     Active Substance: FLUOROURACIL
     Indication: Colorectal cancer
     Dosage: ROUTE OF ADMIN: SUBCUTANEOUS?NOT SPECIFIED
  4. DEXAMETHASONE [Concomitant]
     Active Substance: DEXAMETHASONE
     Indication: Product used for unknown indication
     Dosage: NOT SPECIFIED
  5. METOCLOPRAMIDE [Concomitant]
     Active Substance: METOCLOPRAMIDE
     Indication: Product used for unknown indication
     Dosage: NOT SPECIFIED
  6. ONDANSETRON [Concomitant]
     Active Substance: ONDANSETRON
     Indication: Product used for unknown indication
     Dosage: NOT SPECIFIED
  7. THYROXINE [Concomitant]
     Active Substance: LEVOTHYROXINE
     Indication: Product used for unknown indication
     Dosage: NOT SPECIFIED

REACTIONS (6)
  - Blood pressure decreased [Recovering/Resolving]
  - Body temperature increased [Recovering/Resolving]
  - Febrile neutropenia [Recovering/Resolving]
  - Lip disorder [Recovering/Resolving]
  - Purulent discharge [Recovering/Resolving]
  - Vomiting [Recovering/Resolving]
